FAERS Safety Report 11853141 (Version 1)
Quarter: 2015Q4

REPORT INFORMATION
  Report Type: Report from Study
  Country: US (occurrence: US)
  Receive Date: 20151218
  Receipt Date: 20151218
  Transmission Date: 20160305
  Serious: Yes (Hospitalization, Other)
  Sender: FDA-Public Use
  Company Number: US-ALEXION PHARMACEUTICALS INC-A201505112

PATIENT
  Age: 55 Year
  Sex: Female

DRUGS (1)
  1. SOLIRIS [Suspect]
     Active Substance: ECULIZUMAB
     Indication: PAROXYSMAL NOCTURNAL HAEMOGLOBINURIA
     Dosage: 900 MG, Q2W
     Route: 042

REACTIONS (6)
  - Pyrexia [Unknown]
  - Haemoglobinuria [Unknown]
  - Haematuria [Unknown]
  - Pneumonia [Unknown]
  - Urinary tract infection [Unknown]
  - Wound infection staphylococcal [Unknown]

NARRATIVE: CASE EVENT DATE: 20151129
